FAERS Safety Report 8009360-6 (Version None)
Quarter: 2011Q4

REPORT INFORMATION
  Report Type: 
  Country: None (occurrence: None)
  Receive Date: 20111227
  Receipt Date: 20111223
  Transmission Date: 20120403
  Serious: Yes (Hospitalization)
  Sender: FDA-Public Use
  Company Number: US-B.I. PHARMACEUTICALS,INC./RIDGEFIELD-2011-BP-25431BP

PATIENT
  Sex: Female

DRUGS (5)
  1. PRADAXA [Suspect]
     Indication: ATRIAL FIBRILLATION
     Dosage: 300 MG
     Route: 048
  2. PRADAXA [Suspect]
     Dosage: 150 MG
     Route: 048
  3. DIGOXIN [Concomitant]
     Dosage: 0.125 MG
     Route: 048
  4. FOSINOPRIL SODIUM [Concomitant]
     Route: 048
  5. FUROSEMIDE [Concomitant]
     Dosage: 20 MG
     Route: 048

REACTIONS (2)
  - HAEMORRHOIDAL HAEMORRHAGE [None]
  - ASTHENIA [None]
